FAERS Safety Report 6963583-3 (Version None)
Quarter: 2010Q3

REPORT INFORMATION
  Report Type: 
  Country: None (occurrence: None)
  Receive Date: 20100902
  Receipt Date: 20100824
  Transmission Date: 20110219
  Serious: Yes (Disabling, Other)
  Sender: FDA-Public Use
  Company Number: DK-BAYER-201024820GPV

PATIENT
  Age: 67 Year
  Sex: Male
  Weight: 85 kg

DRUGS (9)
  1. GADOLINIUM CONTRAST [Suspect]
     Indication: SCAN WITH CONTRAST
     Route: 042
     Dates: start: 20060705, end: 20060705
  2. PREDNISOLONE [Concomitant]
     Indication: RHEUMATOID ARTHRITIS
     Route: 048
  3. BISOCOR [Concomitant]
     Indication: HYPERTENSION
     Route: 048
  4. COVERSYL COMP [Concomitant]
     Indication: HYPERTENSION
     Route: 048
  5. METHOTREXATE SODIUM [Concomitant]
     Indication: RHEUMATOID ARTHRITIS
     Route: 048
  6. FERRO DURETTER [Concomitant]
     Indication: IRON DEFICIENCY
     Route: 048
  7. FOLINSYRE SAD [Concomitant]
     Route: 048
  8. IODINE CONTRAST [Concomitant]
     Indication: UROGRAM
     Dosage: VIA NEPHROSTOMY CATHETER
     Dates: start: 20060721
  9. IODINE CONTRAST [Concomitant]
     Dosage: VIA NEPHROSTOMY CATHETER
     Dates: start: 20060802

REACTIONS (13)
  - ASTHENIA [None]
  - BURNING SENSATION [None]
  - DIARRHOEA [None]
  - ERYTHEMA [None]
  - HYPERKERATOSIS [None]
  - MYALGIA [None]
  - NEPHROGENIC SYSTEMIC FIBROSIS [None]
  - PERIPHERAL SENSORIMOTOR NEUROPATHY [None]
  - RESTLESS LEGS SYNDROME [None]
  - SKIN HYPERTROPHY [None]
  - SKIN IRRITATION [None]
  - SKIN OEDEMA [None]
  - UROSEPSIS [None]
